FAERS Safety Report 12407547 (Version 4)
Quarter: 2016Q3

REPORT INFORMATION
  Report Type: Spontaneous
  Country: DE (occurrence: DE)
  Receive Date: 20160526
  Receipt Date: 20160801
  Transmission Date: 20161109
  Serious: Yes (Life-Threatening, Hospitalization)
  Sender: FDA-Public Use
  Company Number: DE-B.I. PHARMACEUTICALS,INC./RIDGEFIELD-2016-BI-33367DE

PATIENT
  Age: 79 Year
  Sex: Male
  Weight: 69 kg

DRUGS (1)
  1. OFEV [Suspect]
     Active Substance: NINTEDANIB
     Indication: IDIOPATHIC PULMONARY FIBROSIS
     Dosage: 300 MG
     Route: 048
     Dates: start: 20150425, end: 20160520

REACTIONS (7)
  - Autoimmune haemolytic anaemia [Recovered/Resolved]
  - Adverse event [Recovered/Resolved]
  - Warm type haemolytic anaemia [Unknown]
  - Warm type haemolytic anaemia [Not Recovered/Not Resolved]
  - Immune system disorder [Unknown]
  - Asthenia [Unknown]
  - Coombs test positive [Unknown]

NARRATIVE: CASE EVENT DATE: 20160519
